FAERS Safety Report 26098727 (Version 1)
Quarter: 2025Q4

REPORT INFORMATION
  Report Type: Spontaneous
  Country: CN (occurrence: CN)
  Receive Date: 20251127
  Receipt Date: 20251127
  Transmission Date: 20260117
  Serious: Yes (Hospitalization, Other)
  Sender: QILU PHARMACEUTICAL
  Company Number: CN-QILU PHARMACEUTICAL CO.LTD.-QLU-000308-2025

PATIENT
  Age: 61 Year
  Sex: Female

DRUGS (2)
  1. LENALIDOMIDE [Suspect]
     Active Substance: LENALIDOMIDE
     Indication: POEMS syndrome
     Dosage: 25 MG ON DAYS 1 TO 21
     Route: 065
     Dates: start: 2021
  2. DEXAMETHASONE [Concomitant]
     Active Substance: DEXAMETHASONE
     Indication: POEMS syndrome
     Dosage: 10 MG ON DAYS 1 TO 2, 8 TO 9, 15 TO 16 AND 22 TO 23
     Route: 065
     Dates: start: 2021

REACTIONS (2)
  - Aplasia pure red cell [Recovered/Resolved]
  - Off label use [Recovered/Resolved]
